FAERS Safety Report 4425800-3 (Version None)
Quarter: 2004Q3

REPORT INFORMATION
  Report Type: 
  Country: None (occurrence: None)
  Receive Date: 20040719
  Receipt Date: 20040407
  Transmission Date: 20050211
  Serious: No
  Sender: FDA-Public Use
  Company Number: A03200401100

PATIENT
  Sex: Male

DRUGS (3)
  1. UROXATRAL [Suspect]
     Dosage: 10 MG OD - ORAL
     Route: 048
     Dates: start: 20040406
  2. ESCITALOPRAM OXALATE [Concomitant]
  3. .. [Suspect]

REACTIONS (2)
  - DYSPNOEA [None]
  - NASAL CONGESTION [None]
